FAERS Safety Report 25815352 (Version 2)
Quarter: 2025Q4

REPORT INFORMATION
  Report Type: Spontaneous
  Country: JP (occurrence: JP)
  Receive Date: 20250918
  Receipt Date: 20251010
  Transmission Date: 20260118
  Serious: Yes (Hospitalization, Other)
  Sender: GENMAB
  Company Number: JP-GENMAB-2025-02782

PATIENT
  Age: 73 Year
  Sex: Female

DRUGS (8)
  1. EPKINLY [Suspect]
     Active Substance: EPCORITAMAB-BYSP
     Indication: Diffuse large B-cell lymphoma refractory
     Dosage: 0.16 MILLIGRAM, SINGLE,  THE FIRST DOSE
     Route: 058
     Dates: start: 20250826, end: 20250826
  2. EPKINLY [Suspect]
     Active Substance: EPCORITAMAB-BYSP
     Dosage: 0.8 MILLIGRAM, SINGLE, THE SECOND DOSE
     Route: 058
     Dates: start: 20250902, end: 20250902
  3. EPKINLY [Suspect]
     Active Substance: EPCORITAMAB-BYSP
     Dosage: 48 MILLIGRAM, FROM THE THIRD DOSE
     Route: 058
     Dates: start: 20250909
  4. DECADRON [Concomitant]
     Active Substance: DEXAMETHASONE
     Indication: Prophylaxis
     Dosage: 14 MILLIGRAM/DAY, ON DAY 1, DAY 2, DAY 3, AND DAY 4 OF ADMINISTRATION OF EPKINLY, AT THE FIRST, SECO
     Dates: start: 20250826, end: 20250925
  5. DIPHENHYDRAMINE HYDROCHLORIDE [Concomitant]
     Active Substance: DIPHENHYDRAMINE HYDROCHLORIDE
     Indication: Prophylaxis
     Dosage: 50 MILLIGRAM, ON DAY 1 OF ADMINISTRATION OF EPKINLY, FROM THE FIRST TO THE FOURTH ADMINISTRATION IN
     Dates: start: 20250826, end: 20250922
  6. CALONAL [Concomitant]
     Active Substance: ACETAMINOPHEN
     Indication: Prophylaxis
     Dosage: 1000 MILLIGRAM, ON DAY 1 OF ADMINISTRATION OF EPKINLY, FROM THE FIRST TO THE FOURTH ADMINISTRATION I
     Dates: start: 20250826, end: 20250922
  7. CALCIUM CHLORIDE\MAGNESIUM CHLORIDE\POTASSIUM CHLORIDE\SODIUM ACETATE\ [Concomitant]
     Active Substance: CALCIUM CHLORIDE\MAGNESIUM CHLORIDE\POTASSIUM CHLORIDE\SODIUM ACETATE\SODIUM CHLORIDE
     Indication: Prophylaxis
     Dosage: 500 MILLILITER, FROM THE FIRST TO THE FOURTH ADMINISTRATION IN CYCLE 1 OF EPKINLY
     Dates: start: 20250826, end: 20250922
  8. SOLITA T NO. 1 [Concomitant]
     Indication: Prophylaxis
     Dosage: 500 MILLILITER, AT THE FOURTH ADMINISTRATION IN CYCLE 1 OF EPKINLY
     Dates: start: 20250922, end: 20250922

REACTIONS (4)
  - Disseminated intravascular coagulation [Recovered/Resolved]
  - Immune effector cell-associated neurotoxicity syndrome [Recovered/Resolved]
  - Cytokine release syndrome [Recovered/Resolved]
  - Blood lactate dehydrogenase increased [Unknown]

NARRATIVE: CASE EVENT DATE: 20250901
